FAERS Safety Report 7242768-5 (Version None)
Quarter: 2011Q1

REPORT INFORMATION
  Report Type: 
  Country: None (occurrence: None)
  Receive Date: 20110114
  Receipt Date: 20110106
  Transmission Date: 20110831
  Serious: Yes (Other)
  Sender: FDA-Public Use
  Company Number: 016214

PATIENT
  Sex: Female
  Weight: 3.2205 kg

DRUGS (5)
  1. KEPPRA [Suspect]
     Indication: EPILEPSY
     Dosage: 1000 DAILY DOSE TRANSPLACENTAL
     Route: 064
     Dates: end: 20091101
  2. FERROUS SULPHATE /00023503/ [Concomitant]
  3. KEPPRA [Suspect]
     Dosage: TRANSPLACENTAL
     Route: 064
     Dates: start: 20091101, end: 20100531
  4. FOLIC ACID [Concomitant]
  5. PRENATAL VITAMINS /01549301/ [Concomitant]

REACTIONS (5)
  - CAESAREAN SECTION [None]
  - JAUNDICE [None]
  - BRADYCARDIA FOETAL [None]
  - CONVULSION [None]
  - JAUNDICE NEONATAL [None]
